FAERS Safety Report 21591074 (Version 1)
Quarter: 2022Q4

REPORT INFORMATION
  Report Type: Spontaneous
  Country: CO (occurrence: CO)
  Receive Date: 20221114
  Receipt Date: 20221114
  Transmission Date: 20230112
  Serious: Yes (Death, Other)
  Sender: FDA-Public Use
  Company Number: CO-PFIZER INC-202200650280

PATIENT
  Age: 41 Year
  Sex: Female

DRUGS (1)
  1. PALBOCICLIB [Suspect]
     Active Substance: PALBOCICLIB
     Dosage: 125 MG (UNSPECIFIED FREQUENCY)
     Route: 048
     Dates: start: 202105

REACTIONS (4)
  - Death [Fatal]
  - Renal disorder [Unknown]
  - Infection [Unknown]
  - Obstruction [Unknown]
